FAERS Safety Report 6185594-0 (Version None)
Quarter: 2009Q2

REPORT INFORMATION
  Report Type: 
  Country: None (occurrence: None)
  Receive Date: 20090511
  Receipt Date: 20090511
  Transmission Date: 20091009
  Serious: Yes (Other)
  Sender: FDA-Public Use
  Company Number: US-PFIZER INC-2006130928

PATIENT
  Sex: Female

DRUGS (2)
  1. LIPITOR [Suspect]
     Route: 048
     Dates: end: 20060811
  2. FISH OIL [Concomitant]

REACTIONS (9)
  - ABASIA [None]
  - ARTHRALGIA [None]
  - CRYING [None]
  - FATIGUE [None]
  - MUSCLE INJURY [None]
  - MUSCULAR WEAKNESS [None]
  - NECK PAIN [None]
  - PAIN [None]
  - PAIN IN EXTREMITY [None]
